FAERS Safety Report 6856787-1 (Version None)
Quarter: 2010Q3

REPORT INFORMATION
  Report Type: 
  Country: None (occurrence: None)
  Receive Date: 20100719
  Receipt Date: 20100709
  Transmission Date: 20110219
  Serious: Yes (Hospitalization, Other)
  Sender: FDA-Public Use
  Company Number: US-AMGEN-QUU423482

PATIENT
  Sex: Female

DRUGS (2)
  1. ENBREL [Suspect]
     Indication: RHEUMATOID ARTHRITIS
     Route: 058
     Dates: start: 20070615
  2. METHOTREXATE [Concomitant]
     Route: 048

REACTIONS (6)
  - BACK PAIN [None]
  - FUNGAL SKIN INFECTION [None]
  - INTERVERTEBRAL DISC PROTRUSION [None]
  - MYOSITIS [None]
  - RHEUMATOID ARTHRITIS [None]
  - SCIATICA [None]
